FAERS Safety Report 6066870-9 (Version None)
Quarter: 2009Q1

REPORT INFORMATION
  Report Type: 
  Country: None (occurrence: None)
  Receive Date: 20090205
  Receipt Date: 20080618
  Transmission Date: 20090719
  Serious: No
  Sender: FDA-Public Use
  Company Number: US-ABBOTT-08P-163-0458593-00

PATIENT
  Sex: Female
  Weight: 119.4 kg

DRUGS (1)
  1. VICODIN [Suspect]
     Indication: FOOT OPERATION
     Route: 048

REACTIONS (1)
  - RASH [None]
